FAERS Safety Report 5418064-5 (Version None)
Quarter: 2007Q3

REPORT INFORMATION
  Report Type: 
  Country: None (occurrence: None)
  Receive Date: 20070817
  Receipt Date: 20070814
  Transmission Date: 20080115
  Serious: Yes (Hospitalization)
  Sender: FDA-Public Use
  Company Number: JP-AVENTIS-200711871JP

PATIENT
  Age: 76 Year
  Sex: Male

DRUGS (7)
  1. AMARYL [Suspect]
     Indication: DIABETES MELLITUS
     Route: 048
  2. TICLOPIDINE HCL [Suspect]
     Route: 048
  3. BASEN [Concomitant]
  4. AMLODIPINE [Concomitant]
  5. MICARDIS [Concomitant]
  6. ASPIRIN [Concomitant]
  7. FAMOTIDINE [Concomitant]

REACTIONS (3)
  - BLOOD URINE PRESENT [None]
  - PROTEIN URINE PRESENT [None]
  - SYSTEMIC LUPUS ERYTHEMATOSUS [None]
